FAERS Safety Report 6021310-0 (Version None)
Quarter: 2008Q4

REPORT INFORMATION
  Report Type: 
  Country: None (occurrence: None)
  Receive Date: 20081229
  Receipt Date: 20081215
  Transmission Date: 20090506
  Serious: Yes (Other)
  Sender: FDA-Public Use
  Company Number: AU-PFIZER INC-2008155120

PATIENT

DRUGS (4)
  1. CELECOXIB [Suspect]
     Indication: ARTHRITIS
  2. DICLOFENAC SODIUM [Suspect]
  3. WARFARIN SODIUM [Suspect]
  4. CRANBERRY [Suspect]

REACTIONS (4)
  - COAGULATION TEST ABNORMAL [None]
  - MELAENA [None]
  - ORTHOSTATIC HYPOTENSION [None]
  - SYNCOPE [None]
